FAERS Safety Report 14545570 (Version 2)
Quarter: 2018Q2

REPORT INFORMATION
  Report Type: Spontaneous
  Country: US (occurrence: US)
  Receive Date: 20180219
  Receipt Date: 20180430
  Transmission Date: 20180711
  Serious: Yes (Other)
  Sender: FDA-Public Use
  Company Number: US-BRISTOL-MYERS SQUIBB COMPANY-BMS-2018-011160

PATIENT
  Sex: Female

DRUGS (1)
  1. YERVOY [Suspect]
     Active Substance: IPILIMUMAB
     Indication: MALIGNANT MELANOMA
     Dosage: 650 MG, Q3MO
     Route: 065
     Dates: start: 20170728, end: 20171023

REACTIONS (3)
  - Off label use [Unknown]
  - Melanoma recurrent [Unknown]
  - Lymphadenopathy [Unknown]
